FAERS Safety Report 7182887-5 (Version None)
Quarter: 2010Q4

REPORT INFORMATION
  Report Type: 
  Country: None (occurrence: None)
  Receive Date: 20101222
  Receipt Date: 20101213
  Transmission Date: 20110411
  Serious: No
  Sender: FDA-Public Use
  Company Number: US-BIOGENIDEC-2010BI043935

PATIENT
  Age: 56 Year
  Sex: Female

DRUGS (1)
  1. AVONEX [Suspect]
     Indication: MULTIPLE SCLEROSIS
     Route: 030
     Dates: start: 20101119

REACTIONS (6)
  - CHILLS [None]
  - FALL [None]
  - HEADACHE [None]
  - INJECTION SITE HAEMATOMA [None]
  - INSOMNIA [None]
  - MEDICAL DEVICE SITE REACTION [None]
